FAERS Safety Report 5256204-1 (Version None)
Quarter: 2007Q1

REPORT INFORMATION
  Report Type: 
  Country: None (occurrence: None)
  Receive Date: 20070306
  Receipt Date: 20070220
  Transmission Date: 20070707
  Serious: Yes (Hospitalization)
  Sender: FDA-Public Use
  Company Number: PHNR2007AU00697

PATIENT
  Age: 41 Year
  Sex: Female

DRUGS (3)
  1. TEGRETOL [Suspect]
     Dosage: 400 MG DAILY
     Dates: start: 20050902
  2. COLOXYL WITH SENNA [Concomitant]
     Dosage: 4 UNK, UNK
     Dates: start: 20050902
  3. THIAMINE [Concomitant]
     Dosage: 200 MG, UNK
     Dates: start: 20050909

REACTIONS (4)
  - CONJUNCTIVITIS [None]
  - MUCOSAL INFLAMMATION [None]
  - RASH [None]
  - SKIN LESION [None]
